FAERS Safety Report 22998464 (Version 3)
Quarter: 2023Q4

REPORT INFORMATION
  Report Type: Spontaneous
  Country: CA (occurrence: CA)
  Receive Date: 20230928
  Receipt Date: 20231017
  Transmission Date: 20240110
  Serious: Yes (Other)
  Sender: FDA-Public Use
  Company Number: CA-CELLTRION INC.-2021CA003187

PATIENT

DRUGS (19)
  1. INFLECTRA [Suspect]
     Active Substance: INFLIXIMAB-DYYB
     Indication: Crohn^s disease
     Dosage: 500 MG AT WEEK 0,2,6 THEN EVERY 8 WEEKS
     Route: 042
     Dates: start: 20210201, end: 20210316
  2. INFLECTRA [Suspect]
     Active Substance: INFLIXIMAB-DYYB
     Dosage: 500 MG AT WEEK 0,2,6 THEN EVERY 8 WEEKS
     Route: 042
     Dates: start: 20210217
  3. INFLECTRA [Suspect]
     Active Substance: INFLIXIMAB-DYYB
     Dosage: 500 MG AT WEEK 0,2,6 THEN EVERY 8 WEEKS
     Route: 042
     Dates: start: 20210316
  4. INFLECTRA [Suspect]
     Active Substance: INFLIXIMAB-DYYB
     Dosage: 500 MG AT WEEK 0,2,6 THEN EVERY 8 WEEKS
     Route: 042
     Dates: start: 20210416
  5. INFLECTRA [Suspect]
     Active Substance: INFLIXIMAB-DYYB
     Dosage: 500 MG AT WEEK 0,2,6 THEN EVERY 8 WEEKS
     Route: 042
     Dates: start: 20210521
  6. INFLECTRA [Suspect]
     Active Substance: INFLIXIMAB-DYYB
     Dosage: 500 MG AT WEEK 0,2,6 THEN EVERY 8 WEEKS
     Route: 042
     Dates: start: 20210716
  7. INFLECTRA [Suspect]
     Active Substance: INFLIXIMAB-DYYB
     Dosage: 500 MG AT WEEK 0,2,6 THEN EVERY 8 WEEKS
     Route: 042
     Dates: start: 20210716
  8. INFLECTRA [Suspect]
     Active Substance: INFLIXIMAB-DYYB
     Dosage: 500 MG AT WEEK 0,2,6 THEN EVERY 8 WEEKS
     Route: 042
     Dates: start: 20210908
  9. INFLECTRA [Suspect]
     Active Substance: INFLIXIMAB-DYYB
     Dosage: 500 MG AT WEEK 0,2,6 THEN EVERY 8 WEEKS
     Route: 042
     Dates: start: 20211102
  10. INFLECTRA [Suspect]
     Active Substance: INFLIXIMAB-DYYB
     Dosage: 500 MG AT WEEK 0,2,6 THEN EVERY 8 WEEKS
     Route: 042
     Dates: start: 20220302
  11. INFLECTRA [Suspect]
     Active Substance: INFLIXIMAB-DYYB
     Dosage: 500 MG AT WEEK 0,2,6 THEN EVERY 8 WEEKS
     Route: 042
     Dates: start: 20220430
  12. INFLECTRA [Suspect]
     Active Substance: INFLIXIMAB-DYYB
     Dosage: 500 MG EVERY 8 WEEKS
     Route: 042
     Dates: start: 20220627
  13. INFLECTRA [Suspect]
     Active Substance: INFLIXIMAB-DYYB
     Dosage: 500 MG EVERY 8 WEEKS
     Route: 042
     Dates: start: 20220826
  14. INFLECTRA [Suspect]
     Active Substance: INFLIXIMAB-DYYB
     Dosage: 500 MG EVERY 8 WEEKS
     Route: 042
     Dates: start: 20221108
  15. INFLECTRA [Suspect]
     Active Substance: INFLIXIMAB-DYYB
     Dosage: 500 MG EVERY 8 WEEKS
     Route: 042
     Dates: start: 20230428
  16. INFLECTRA [Suspect]
     Active Substance: INFLIXIMAB-DYYB
     Dosage: 500 MG, EVERY 8 WEEKS
     Route: 042
     Dates: start: 20230628
  17. INFLECTRA [Suspect]
     Active Substance: INFLIXIMAB-DYYB
     Dosage: 500 MG, 14 WEEKS AND 6 DAYS (SUPPOSE TO RECEIVE EVERY 8 WEEKS)
     Route: 042
     Dates: start: 20231010
  18. PREDNISONE [Concomitant]
     Active Substance: PREDNISONE
     Dosage: UNK
     Dates: start: 202012
  19. PREDNISONE [Concomitant]
     Active Substance: PREDNISONE
     Dosage: 1 DF, UNKNOWN DOSE
     Route: 065
     Dates: start: 202012

REACTIONS (21)
  - Respiratory tract infection [Not Recovered/Not Resolved]
  - Nasal septum deviation [Unknown]
  - Acne [Not Recovered/Not Resolved]
  - Weight decreased [Unknown]
  - Dry skin [Unknown]
  - Night sweats [Unknown]
  - Cough [Unknown]
  - Lethargy [Unknown]
  - Rhinorrhoea [Unknown]
  - Erythema nodosum [Recovered/Resolved]
  - Fatigue [Not Recovered/Not Resolved]
  - Lymphadenopathy [Unknown]
  - Abdominal pain upper [Unknown]
  - Dyspnoea [Unknown]
  - Arthralgia [Recovered/Resolved]
  - COVID-19 [Recovered/Resolved]
  - Condition aggravated [Recovered/Resolved]
  - Respiratory disorder [Unknown]
  - Off label use [Unknown]
  - Intentional product use issue [Unknown]
  - Inappropriate schedule of product administration [Unknown]

NARRATIVE: CASE EVENT DATE: 20210101
